FAERS Safety Report 5748431-1 (Version None)
Quarter: 2008Q2

REPORT INFORMATION
  Report Type: 
  Country: None (occurrence: None)
  Receive Date: 20080523
  Receipt Date: 20080522
  Transmission Date: 20081010
  Serious: Yes (Hospitalization)
  Sender: FDA-Public Use
  Company Number: US-MERCK-0805USA02369

PATIENT
  Age: 63 Year
  Sex: Female

DRUGS (10)
  1. FOSAMAX [Suspect]
     Indication: OSTEOPOROSIS
     Route: 048
     Dates: start: 20050101, end: 20080201
  2. VITAMINS (UNSPECIFIED) [Concomitant]
     Route: 065
  3. ASPIRIN [Concomitant]
     Route: 065
  4. OS-CAL [Concomitant]
     Route: 065
  5. NORVASC [Concomitant]
     Route: 065
  6. HYDROCHLOROTHIAZIDE [Concomitant]
     Route: 065
  7. SINGULAIR [Concomitant]
     Route: 065
  8. CARAFATE [Concomitant]
     Route: 065
  9. PANTOPRAZOLE SODIUM [Concomitant]
     Route: 065
  10. ACTONEL [Concomitant]
     Route: 065
     Dates: end: 20050301

REACTIONS (2)
  - CHOKING [None]
  - OESOPHAGEAL ULCER [None]
